FAERS Safety Report 9346857 (Version 1)
Quarter: 2013Q2

REPORT INFORMATION
  Report Type: Spontaneous
  Country: US (occurrence: US)
  Receive Date: 20130613
  Receipt Date: 20130613
  Transmission Date: 20140414
  Serious: No
  Sender: FDA-Public Use
  Company Number: US-PFIZER INC-2013173069

PATIENT
  Age: 55 Year
  Sex: Female

DRUGS (1)
  1. LYRICA [Suspect]
     Dosage: 75 MG, 3X/DAY (1 TAB PO TID)
     Route: 048

REACTIONS (5)
  - Pain [Unknown]
  - Burning sensation [Unknown]
  - Pain in extremity [Unknown]
  - Insomnia [Unknown]
  - Neuropathy peripheral [Unknown]
